FAERS Safety Report 4967775-4 (Version None)
Quarter: 2006Q2

REPORT INFORMATION
  Report Type: 
  Country: None (occurrence: None)
  Receive Date: 20060404
  Receipt Date: 20060330
  Transmission Date: 20061013
  Serious: Yes (Other)
  Sender: FDA-Public Use
  Company Number: CHWYE351231JAN06

PATIENT
  Age: 43 Year
  Sex: Female

DRUGS (4)
  1. EFFEXOR [Suspect]
     Dates: start: 20051001, end: 20060101
  2. EFFEXOR [Suspect]
     Dosage: 1 TABLET 1X PER 1 DAY, ORAL
     Route: 048
     Dates: start: 20060101
  3. INTERFERON ALFA-2A (INTERFERON ALFA, 0) [Suspect]
     Dosage: UNKNOWN
     Route: 065
  4. RIBAVIRIN (RIBAVIRIN , 0) [Suspect]
     Dosage: UNKNOWN
     Route: 065

REACTIONS (4)
  - HAEMATOMA [None]
  - HAEMOGLOBIN DECREASED [None]
  - MENORRHAGIA [None]
  - METRORRHAGIA [None]
